FAERS Safety Report 6784789-2 (Version None)
Quarter: 2010Q2

REPORT INFORMATION
  Report Type: 
  Country: None (occurrence: None)
  Receive Date: 20100622
  Receipt Date: 20100611
  Transmission Date: 20101027
  Serious: Yes (Other)
  Sender: FDA-Public Use
  Company Number: PHEH2010US02910

PATIENT
  Sex: Female

DRUGS (1)
  1. GLEEVEC [Suspect]
     Indication: SYNOVITIS
     Dosage: UNK
     Dates: start: 20090301

REACTIONS (3)
  - DISEASE PROGRESSION [None]
  - NEOPLASM PROGRESSION [None]
  - SYNOVITIS [None]
